FAERS Safety Report 8530090-6 (Version None)
Quarter: 2012Q2

REPORT INFORMATION
  Report Type: 
  Country: None (occurrence: None)
  Receive Date: 20120411
  Receipt Date: 20120313
  Transmission Date: 20120825
  Serious: Yes (Other)
  Sender: FDA-Public Use
  Company Number: PHHY2011US47816

PATIENT
  Age: 9 Year
  Sex: Female
  Weight: 70 kg

DRUGS (3)
  1. ILARIS [Suspect]
     Indication: CRYOPYRIN ASSOCIATED PERIODIC SYNDROME
     Dosage: 90 MG, EVERY 8 WEEKS, SUBCUTANEOUS 75 MG EVERY 8 WEEKS, SUBCUTANEOUS
     Route: 058
  2. ILARIS [Suspect]
     Indication: FAMILIAL COLD AUTOINFLAMMATORY SYNDROME
     Dosage: 90 MG, EVERY 8 WEEKS, SUBCUTANEOUS 75 MG EVERY 8 WEEKS, SUBCUTANEOUS
     Route: 058
  3. ILARIS [Suspect]
     Indication: URTICARIA
     Dosage: 90 MG, EVERY 8 WEEKS, SUBCUTANEOUS 75 MG EVERY 8 WEEKS, SUBCUTANEOUS
     Route: 058

REACTIONS (3)
  - CONSTIPATION [None]
  - URINARY TRACT INFECTION ENTEROCOCCAL [None]
  - ABDOMINAL PAIN UPPER [None]
